FAERS Safety Report 8054462-1 (Version None)
Quarter: 2012Q1

REPORT INFORMATION
  Report Type: 
  Country: None (occurrence: None)
  Receive Date: 20120118
  Receipt Date: 20120110
  Transmission Date: 20120608
  Serious: Yes (Hospitalization, Other)
  Sender: FDA-Public Use
  Company Number: US-ASTRAZENECA-2011SE72130

PATIENT
  Age: 21425 Day
  Sex: Female
  Weight: 65.9 kg

DRUGS (7)
  1. ABILIFY [Concomitant]
  2. SAPHRIS [Concomitant]
     Dates: start: 20111115
  3. ZYPREXA [Suspect]
     Dates: end: 20110101
  4. SEROQUEL [Suspect]
     Indication: BIPOLAR I DISORDER
     Route: 048
  5. CHANTIX [Concomitant]
  6. SEROQUEL [Suspect]
     Dosage: 100 MG EVERY MORNING, 300 MG EVERY NIGHT
     Route: 048
     Dates: start: 20110812
  7. LEXAPRO [Suspect]
     Indication: DEPRESSION
     Route: 048
     Dates: start: 20071219

REACTIONS (6)
  - OVERDOSE [None]
  - WEIGHT INCREASED [None]
  - PAIN [None]
  - ASPARTATE AMINOTRANSFERASE INCREASED [None]
  - BIPOLAR I DISORDER [None]
  - ALANINE AMINOTRANSFERASE INCREASED [None]
